FAERS Safety Report 10034781 (Version 1)
Quarter: 2014Q1

REPORT INFORMATION
  Report Type: Spontaneous
  Country: US (occurrence: None)
  Receive Date: 20140306
  Receipt Date: 20140306
  Transmission Date: 20141002
  Serious: Yes (Other)
  Sender: FDA-Public Use
  Company Number: 163-21880-13074031

PATIENT
  Age: 64 Year
  Sex: Female

DRUGS (3)
  1. REVLIMID [Suspect]
     Indication: PLASMA CELL MYELOMA
     Route: 048
     Dates: start: 201204
  2. BACTRIM DS [Suspect]
     Indication: ANTIFUNGAL PROPHYLAXIS
     Dosage: M-W-F, PO
     Route: 048
     Dates: start: 20130305, end: 20130820
  3. ACYCLOVIR (ACICLOVIR) (ACICLOVIR) [Concomitant]

REACTIONS (3)
  - Diarrhoea [None]
  - Deep vein thrombosis [None]
  - Dehydration [None]
